FAERS Safety Report 24933782 (Version 1)
Quarter: 2025Q1

REPORT INFORMATION
  Report Type: Report from Study
  Country: CA (occurrence: CA)
  Receive Date: 20250206
  Receipt Date: 20250206
  Transmission Date: 20250409
  Serious: Yes (Death, Other)
  Sender: EXELIXIS
  Company Number: CA-IPSEN Group, Research and Development-2024-03338

PATIENT
  Age: 64 Year
  Sex: Male

DRUGS (5)
  1. CABOMETYX [Suspect]
     Active Substance: CABOZANTINIB S-MALATE
     Indication: Renal cell carcinoma
     Dosage: 40MG DAILY PO
     Route: 048
     Dates: start: 20231002
  2. LEVOTHYROXINE [Concomitant]
     Active Substance: LEVOTHYROXINE
  3. TELMISARTAN [Concomitant]
     Active Substance: TELMISARTAN
  4. GLICLAZIDE [Concomitant]
     Active Substance: GLICLAZIDE
  5. ATROPINE\DIPHENOXYLATE [Concomitant]
     Active Substance: ATROPINE\DIPHENOXYLATE

REACTIONS (1)
  - Malignant neoplasm progression [Fatal]
